FAERS Safety Report 9721499 (Version 3)
Quarter: 2014Q1

REPORT INFORMATION
  Report Type: Spontaneous
  Country: AU (occurrence: AU)
  Receive Date: 20131130
  Receipt Date: 20140221
  Transmission Date: 20141002
  Serious: Yes (Disabling)
  Sender: FDA-Public Use
  Company Number: AU-009507513-1311AUS009945

PATIENT
  Sex: Male

DRUGS (2)
  1. PEGATRON [Suspect]
     Dosage: UNK
     Dates: start: 20130808
  2. REBETOL [Suspect]
     Dosage: UNK
     Route: 048

REACTIONS (5)
  - Bedridden [Unknown]
  - Drug ineffective [Unknown]
  - Drug dose omission [Unknown]
  - Incorrect dose administered [Unknown]
  - Wrong technique in drug usage process [Unknown]
